APPROVED DRUG PRODUCT: QUIDE
Active Ingredient: PIPERACETAZINE
Strength: 25MG
Dosage Form/Route: TABLET;ORAL
Application: N013615 | Product #002
Applicant: DOW PHARMACEUTICAL CORP SUB DOW CHEMICAL CO
Approved: Approved Prior to Jan 1, 1982 | RLD: No | RS: No | Type: DISCN